FAERS Safety Report 14227619 (Version 2)
Quarter: 2018Q1

REPORT INFORMATION
  Report Type: Report from Study
  Country: DE (occurrence: DE)
  Receive Date: 20171127
  Receipt Date: 20180326
  Transmission Date: 20180508
  Serious: Yes (Hospitalization)
  Sender: FDA-Public Use
  Company Number: DE-SA-2017SA089612

PATIENT
  Age: 36 Year
  Sex: Male
  Weight: 60 kg

DRUGS (8)
  1. TOLPERISONE [Concomitant]
     Active Substance: TOLPERISONE
     Indication: MUSCLE SPASTICITY
     Route: 048
     Dates: start: 20170512
  2. LEMTRADA [Suspect]
     Active Substance: ALEMTUZUMAB
     Indication: MULTIPLE SCLEROSIS
     Route: 041
     Dates: start: 20160406, end: 20160410
  3. LEMTRADA [Suspect]
     Active Substance: ALEMTUZUMAB
     Indication: MULTIPLE SCLEROSIS
     Route: 041
     Dates: start: 20170503, end: 20170505
  4. CORTISONE [Concomitant]
     Active Substance: CORTISONE\HYDROCORTISONE
     Indication: INFLAMMATION
     Route: 042
     Dates: start: 20170503, end: 20170505
  5. ACICLOVIR [Concomitant]
     Active Substance: ACYCLOVIR
     Indication: ANTIVIRAL PROPHYLAXIS
     Route: 048
     Dates: start: 20170503, end: 20170508
  6. TOLPERISONE [Concomitant]
     Active Substance: TOLPERISONE
     Indication: MUSCLE SPASTICITY
     Dosage: START DATE: FOR YEARS; DOSE: 150
     Route: 065
  7. VENLAFAXINE [Concomitant]
     Active Substance: VENLAFAXINE HYDROCHLORIDE
     Indication: DEPRESSION
     Route: 048
     Dates: start: 20170512
  8. VENLAFAXINE [Concomitant]
     Active Substance: VENLAFAXINE HYDROCHLORIDE
     Indication: DEPRESSION
     Dosage: START DATE: FOR YEARS
     Route: 065

REACTIONS (12)
  - Dysphonia [Unknown]
  - Diarrhoea [Recovered/Resolved]
  - Headache [Recovered/Resolved]
  - Night sweats [Unknown]
  - Epistaxis [Recovered/Resolved]
  - Hyperchlorhydria [Recovering/Resolving]
  - Eosinophilia [Recovering/Resolving]
  - Poor quality sleep [Not Recovered/Not Resolved]
  - Gastritis [Recovering/Resolving]
  - White blood cell count increased [Unknown]
  - Weight decreased [Recovering/Resolving]
  - Asthenia [Recovering/Resolving]

NARRATIVE: CASE EVENT DATE: 20170505
